FAERS Safety Report 6907983-6 (Version None)
Quarter: 2010Q3

REPORT INFORMATION
  Report Type: 
  Country: None (occurrence: None)
  Receive Date: 20100712
  Receipt Date: 20100324
  Transmission Date: 20110219
  Serious: No
  Sender: FDA-Public Use
  Company Number: US-000089

PATIENT
  Sex: Female
  Weight: 47.6277 kg

DRUGS (2)
  1. KUVAN [Suspect]
     Indication: PHENYLKETONURIA
     Dosage: 1000 MG QD ORAL
     Route: 048
     Dates: start: 20100223
  2. OTHER NASAL PREPARATIONS [Concomitant]

REACTIONS (3)
  - NASAL CONGESTION [None]
  - NASOPHARYNGITIS [None]
  - NAUSEA [None]
